FAERS Safety Report 19728190 (Version 1)
Quarter: 2021Q3

REPORT INFORMATION
  Report Type: Spontaneous
  Country: AU (occurrence: AU)
  Receive Date: 20210820
  Receipt Date: 20210820
  Transmission Date: 20211014
  Serious: Yes (Other)
  Sender: FDA-Public Use
  Company Number: AU-ORGANON-O2108AUS001442

PATIENT
  Sex: Male

DRUGS (1)
  1. FINASTERIDE. [Suspect]
     Active Substance: FINASTERIDE
     Dosage: 1 MILLIGRAM (MG) PER DAY (QD)

REACTIONS (2)
  - Cryptorchism [Not Recovered/Not Resolved]
  - Congenital genital malformation [Not Recovered/Not Resolved]
